FAERS Safety Report 5114928-0 (Version None)
Quarter: 2006Q3

REPORT INFORMATION
  Report Type: 
  Country: None (occurrence: None)
  Receive Date: 20060922
  Receipt Date: 20060922
  Transmission Date: 20061208
  Serious: Yes (Hospitalization)
  Sender: FDA-Public Use
  Company Number: None

PATIENT
  Age: 40 Year
  Sex: Male

DRUGS (5)
  1. SEROQUEL [Suspect]
     Indication: BIPOLAR II DISORDER
     Dosage: 600 MG 1/2-1 HS PO
     Route: 048
     Dates: start: 19980101, end: 20040101
  2. DEPAKOTE ER [Concomitant]
  3. CYMBALTA [Concomitant]
  4. AMBIEN [Concomitant]
  5. ZYPREXA [Concomitant]

REACTIONS (2)
  - ASPIRATION [None]
  - DYSPHAGIA [None]
